FAERS Safety Report 19351493 (Version 3)
Quarter: 2021Q4

REPORT INFORMATION
  Report Type: Spontaneous
  Country: US (occurrence: US)
  Receive Date: 20210531
  Receipt Date: 20211125
  Transmission Date: 20220304
  Serious: No
  Sender: FDA-Public Use
  Company Number: US-PFIZER INC-2021253424

PATIENT
  Age: 80 Year
  Sex: Female
  Weight: 86.168 kg

DRUGS (2)
  1. GABAPENTIN [Suspect]
     Active Substance: GABAPENTIN
     Indication: Neuropathy peripheral
     Dosage: 300 MG
  2. GABAPENTIN [Suspect]
     Active Substance: GABAPENTIN
     Dosage: 100 MG, 1X/DAY  (100MG XDAY)

REACTIONS (6)
  - Pain [Unknown]
  - Wrong product administered [Unknown]
  - Illness [Unknown]
  - Spinal disorder [Unknown]
  - Drug ineffective [Unknown]
  - Prescription drug used without a prescription [Unknown]
